FAERS Safety Report 13438033 (Version 1)
Quarter: 2017Q2

REPORT INFORMATION
  Report Type: Other
  Country: LT (occurrence: LT)
  Receive Date: 20170413
  Receipt Date: 20170413
  Transmission Date: 20170830
  Serious: Yes (Other)
  Sender: FDA-Public Use
  Company Number: LT-HIKMA PHARMACEUTICALS CO. LTD-2017LT004553

PATIENT

DRUGS (2)
  1. INFLECTRA [Suspect]
     Active Substance: INFLIXIMAB-DYYB
     Indication: RHEUMATOID ARTHRITIS
     Dosage: 200 MG, INFUSION
     Route: 042
     Dates: start: 20170104, end: 20170215
  2. METHOTREXATE. [Concomitant]
     Active Substance: METHOTREXATE
     Dosage: 10 MG, 1/WEEK
     Route: 065

REACTIONS (4)
  - Tachycardia [Recovered/Resolved]
  - Dizziness [Recovered/Resolved]
  - Rash macular [Recovered/Resolved]
  - White blood cell count decreased [Recovered/Resolved]

NARRATIVE: CASE EVENT DATE: 20170215
